FAERS Safety Report 8075552-3 (Version None)
Quarter: 2012Q1

REPORT INFORMATION
  Report Type: 
  Country: None (occurrence: None)
  Receive Date: 20120127
  Receipt Date: 20120120
  Transmission Date: 20120608
  Serious: Yes (Other)
  Sender: FDA-Public Use
  Company Number: US-BRISTOL-MYERS SQUIBB COMPANY-16309684

PATIENT
  Age: 67 Year
  Sex: Female
  Weight: 68 kg

DRUGS (2)
  1. ORENCIA [Suspect]
     Indication: RHEUMATOID ARTHRITIS
     Dosage: INTRAVENOUS INFUSION 8DEC11 LAST INFUSION 16DEC11 LOT:1F66403
     Route: 058
     Dates: start: 20111209
  2. METHOTREXATE [Concomitant]

REACTIONS (6)
  - VITREOUS FLOATERS [None]
  - LIVER FUNCTION TEST ABNORMAL [None]
  - HEADACHE [None]
  - PHOTOPSIA [None]
  - VITAMIN D DEFICIENCY [None]
  - DRUG INEFFECTIVE [None]
